FAERS Safety Report 5700119-9 (Version None)
Quarter: 2008Q2

REPORT INFORMATION
  Report Type: 
  Country: None (occurrence: None)
  Receive Date: 20080410
  Receipt Date: 20080327
  Transmission Date: 20081010
  Serious: Yes (Life-Threatening, Hospitalization)
  Sender: FDA-Public Use
  Company Number: DK-ELI_LILLY_AND_COMPANY-DK200803006089

PATIENT
  Sex: Female

DRUGS (4)
  1. STRATTERA [Suspect]
     Indication: ATTENTION DEFICIT/HYPERACTIVITY DISORDER
     Dosage: 40 MG, DAILY (1/D)
     Route: 048
     Dates: start: 20060201, end: 20071118
  2. ALOPAM [Concomitant]
     Dosage: 10-60 MG DAILY
     Route: 048
     Dates: start: 20051122
  3. MIRTAZAPINE [Concomitant]
     Indication: DEPRESSION
     Dosage: 30 MG, DAILY (1/D)
     Route: 048
     Dates: start: 20051201, end: 20070530
  4. IMOCLONE [Concomitant]
     Dosage: 3.75 - 7.5 MG DAILY (1/D)
     Route: 048
     Dates: start: 20051123, end: 20071122

REACTIONS (5)
  - AKATHISIA [None]
  - CYSTITIS-LIKE SYMPTOM [None]
  - DELIRIUM [None]
  - DYSMENORRHOEA [None]
  - PSYCHOTIC DISORDER [None]
